FAERS Safety Report 23581183 (Version 1)
Quarter: 2024Q1

REPORT INFORMATION
  Report Type: Spontaneous
  Country: US (occurrence: US)
  Receive Date: 20240229
  Receipt Date: 20240229
  Transmission Date: 20240410
  Serious: No
  Sender: FDA-Public Use
  Company Number: US-JNJFOC-20240242186

PATIENT
  Sex: Female

DRUGS (3)
  1. TYLENOL [Suspect]
     Active Substance: ACETAMINOPHEN
     Indication: Arthralgia
     Route: 065
  2. TYLENOL [Suspect]
     Active Substance: ACETAMINOPHEN
     Indication: COVID-19
  3. TYLENOL [Suspect]
     Active Substance: ACETAMINOPHEN
     Indication: Sleep disorder therapy

REACTIONS (2)
  - Headache [Unknown]
  - Product use in unapproved indication [Unknown]
